FAERS Safety Report 5442355-5 (Version None)
Quarter: 2007Q3

REPORT INFORMATION
  Report Type: 
  Country: None (occurrence: None)
  Receive Date: 20070904
  Receipt Date: 20070824
  Transmission Date: 20080115
  Serious: Yes (Death)
  Sender: FDA-Public Use
  Company Number: JP-PFIZER INC-2007056757

PATIENT
  Age: 59 Year
  Sex: Male
  Weight: 57 kg

DRUGS (3)
  1. VORICONAZOLE [Suspect]
     Indication: BRONCHOPULMONARY ASPERGILLOSIS
     Dosage: DAILY DOSE:400MG
  2. MICAFUNGIN [Concomitant]
     Dosage: DAILY DOSE:150MG
  3. AMPHOTERICIN B [Concomitant]
     Dosage: DAILY DOSE:25MG

REACTIONS (1)
  - MUCORMYCOSIS [None]
